FAERS Safety Report 10986413 (Version 1)
Quarter: 2015Q1

REPORT INFORMATION
  Report Type: Spontaneous
  Country: US (occurrence: None)
  Receive Date: 20150324
  Receipt Date: 20150324
  Transmission Date: 20150721
  Serious: Yes (Other)
  Sender: FDA-Public Use
  Company Number: 1000069109

PATIENT
  Age: 60 Year
  Sex: Female

DRUGS (2)
  1. VIIBRYD [Suspect]
     Active Substance: VILAZODONE HYDROCHLORIDE
     Indication: DEPRESSION
     Route: 048
     Dates: start: 20130806, end: 201408
  2. VIIBRYD [Suspect]
     Active Substance: VILAZODONE HYDROCHLORIDE
     Indication: DEPRESSION
     Route: 048
     Dates: start: 201307, end: 201307

REACTIONS (11)
  - Malaise [None]
  - Memory impairment [None]
  - Suicidal ideation [None]
  - Crying [None]
  - Feeling abnormal [None]
  - Fear [None]
  - Depression [None]
  - Hallucination [None]
  - Personality change [None]
  - Balance disorder [None]
  - Pain [None]

NARRATIVE: CASE EVENT DATE: 2012
